FAERS Safety Report 4570338-6 (Version None)
Quarter: 2005Q1

REPORT INFORMATION
  Report Type: 
  Country: None (occurrence: None)
  Receive Date: 20050204
  Receipt Date: 20041208
  Transmission Date: 20050727
  Serious: Yes (Other)
  Sender: FDA-Public Use
  Company Number: FR-ROCHE-388942

PATIENT
  Age: 57 Year
  Sex: Male
  Weight: 83 kg

DRUGS (9)
  1. FUZEON [Suspect]
     Indication: HIV INFECTION
     Route: 058
     Dates: start: 20040415
  2. CLONAZEPAM [Suspect]
     Indication: DRUG USE FOR UNKNOWN INDICATION
     Route: 065
  3. EPIVIR [Concomitant]
     Dates: start: 20040415
  4. NORVIR [Suspect]
     Indication: HIV INFECTION
     Route: 048
     Dates: start: 20040413
  5. TIPRANAVIR [Concomitant]
     Indication: HIV INFECTION
     Route: 048
     Dates: start: 20040413
  6. BACTRIM [Concomitant]
  7. LIPANTHYL [Concomitant]
  8. FLUDEX [Concomitant]
     Route: 048
  9. TENORMIN [Concomitant]
     Route: 048
     Dates: start: 19971001

REACTIONS (4)
  - ATRIAL FIBRILLATION [None]
  - CHEST PAIN [None]
  - EXTRASYSTOLES [None]
  - SINUS ARRHYTHMIA [None]
